FAERS Safety Report 6598771-1 (Version None)
Quarter: 2010Q1

REPORT INFORMATION
  Report Type: 
  Country: None (occurrence: None)
  Receive Date: 20100217
  Receipt Date: 20100127
  Transmission Date: 20100710
  Serious: Yes (Death, Hospitalization)
  Sender: FDA-Public Use
  Company Number: 2009AC000271

PATIENT
  Age: 82 Year
  Sex: Female
  Weight: 75.7507 kg

DRUGS (24)
  1. DIGOXIN [Suspect]
     Dosage: PO
     Route: 048
  2. ALDRIN [Concomitant]
  3. NEXIUM [Concomitant]
  4. POTASSIUM [Concomitant]
  5. CITRACIL [Concomitant]
  6. ASPIRIN [Concomitant]
  7. FUROSEMIDE [Concomitant]
  8. METOPROLOL TARTRATE [Concomitant]
  9. MAGNESIUM OXIDE [Concomitant]
  10. ATORVASTATIN CALCIUM [Concomitant]
  11. AMIODARONE HCL [Concomitant]
  12. OMEPRAZOLE [Concomitant]
  13. RISPERDAL [Concomitant]
  14. LISINOPRIL [Concomitant]
  15. IMDUR [Concomitant]
  16. LOVENOX [Concomitant]
  17. ALBUTEROL [Concomitant]
  18. ISOSORBIDE MONONITRATE [Concomitant]
  19. MULTI-VITAMIN [Concomitant]
  20. PROTONIX [Concomitant]
  21. ACETAMINOPHEN [Concomitant]
  22. ZOFRAN [Concomitant]
  23. AMPICILLIN AND SULBACTAM [Concomitant]
  24. VANCOMYCIN [Concomitant]

REACTIONS (17)
  - ABDOMINAL DISTENSION [None]
  - ABDOMINAL PAIN UPPER [None]
  - AORTIC STENOSIS [None]
  - ATRIAL FIBRILLATION [None]
  - ATRIAL PRESSURE INCREASED [None]
  - CARDIAC FAILURE CONGESTIVE [None]
  - CORONARY ARTERY OCCLUSION [None]
  - ECONOMIC PROBLEM [None]
  - HIATUS HERNIA [None]
  - LEFT VENTRICULAR HYPERTROPHY [None]
  - MULTIPLE INJURIES [None]
  - NAUSEA [None]
  - PLEURAL EFFUSION [None]
  - SURGERY [None]
  - VASCULAR PSEUDOANEURYSM [None]
  - WEANING FAILURE [None]
  - WOUND INFECTION [None]
